FAERS Safety Report 14526730 (Version 2)
Quarter: 2018Q1

REPORT INFORMATION
  Report Type: Spontaneous
  Country: US (occurrence: US)
  Receive Date: 20180213
  Receipt Date: 20180215
  Transmission Date: 20180509
  Serious: No
  Sender: FDA-Public Use
  Company Number: US-BAYER-2018-022072

PATIENT
  Age: 76 Year
  Sex: Female
  Weight: 76 kg

DRUGS (4)
  1. FLONASE [Concomitant]
     Active Substance: FLUTICASONE PROPIONATE
  2. CLARITIN [Suspect]
     Active Substance: LORATADINE
     Indication: SECRETION DISCHARGE
     Route: 048
     Dates: start: 20180131, end: 20180131
  3. CLARITIN [Suspect]
     Active Substance: LORATADINE
     Indication: PRODUCTIVE COUGH
  4. CLARITIN [Suspect]
     Active Substance: LORATADINE
     Indication: SINUS DISORDER

REACTIONS (5)
  - Off label use [Unknown]
  - Product use in unapproved indication [Unknown]
  - Productive cough [Not Recovered/Not Resolved]
  - Secretion discharge [Not Recovered/Not Resolved]
  - Drug administration error [None]

NARRATIVE: CASE EVENT DATE: 20180131
